FAERS Safety Report 9301680 (Version 1)
Quarter: 2013Q2

REPORT INFORMATION
  Report Type: Spontaneous
  Country: GB (occurrence: GB)
  Receive Date: 20130521
  Receipt Date: 20130521
  Transmission Date: 20140414
  Serious: Yes (Hospitalization)
  Sender: FDA-Public Use
  Company Number: GB-TEVA-405626ISR

PATIENT
  Age: 32 Year
  Sex: Male

DRUGS (1)
  1. WARFARIN [Suspect]
     Indication: ANTICOAGULANT THERAPY
     Route: 065

REACTIONS (4)
  - Muscle haemorrhage [Recovering/Resolving]
  - Neuralgia [Recovering/Resolving]
  - Paraesthesia [Recovering/Resolving]
  - Sensory loss [Recovering/Resolving]
